FAERS Safety Report 25408651 (Version 2)
Quarter: 2025Q2

REPORT INFORMATION
  Report Type: Spontaneous
  Country: JP (occurrence: JP)
  Receive Date: 20250606
  Receipt Date: 20250624
  Transmission Date: 20250717
  Serious: Yes (Other)
  Sender: MERCK SHARP & DOHME LLC
  Company Number: JP-MSD-2301JPN003127J

PATIENT
  Age: 67 Year
  Sex: Male

DRUGS (1)
  1. KEYTRUDA [Suspect]
     Active Substance: PEMBROLIZUMAB
     Indication: Oropharyngeal cancer
     Dosage: 200 MG, EVERY 3 WEEKS,  INTRAVENOUS DRIP
     Route: 041
     Dates: start: 202105

REACTIONS (1)
  - Sjogren^s syndrome [Recovered/Resolved]

NARRATIVE: CASE EVENT DATE: 20220601
